FAERS Safety Report 9839512 (Version 1)
Quarter: 2014Q1

REPORT INFORMATION
  Report Type: Spontaneous
  Country: US (occurrence: US)
  Receive Date: 20140124
  Receipt Date: 20140124
  Transmission Date: 20141002
  Serious: No
  Sender: FDA-Public Use
  Company Number: US-B.I. PHARMACEUTICALS,INC./RIDGEFIELD-2014-BI-02036BP

PATIENT
  Age: 5 Year
  Sex: Male

DRUGS (1)
  1. CATAPRES TTS [Suspect]
     Indication: HYPERTENSION
     Dosage: 0.05 MG
     Route: 061
     Dates: start: 20140115

REACTIONS (2)
  - Inappropriate schedule of drug administration [Not Recovered/Not Resolved]
  - Off label use [Unknown]
